FAERS Safety Report 16926601 (Version 2)
Quarter: 2020Q2

REPORT INFORMATION
  Report Type: Report from Study
  Country: US (occurrence: US)
  Receive Date: 20191016
  Receipt Date: 20200528
  Transmission Date: 20200713
  Serious: Yes (Other)
  Sender: FDA-Public Use
  Company Number: US-SA-2019SA284564

PATIENT
  Age: 78 Year
  Sex: Male

DRUGS (1)
  1. DUPILUMAB [Suspect]
     Active Substance: DUPILUMAB
     Indication: DERMATITIS ATOPIC
     Dosage: 300 MG, QOW
     Route: 058

REACTIONS (13)
  - Oropharyngeal pain [Recovering/Resolving]
  - Rash [Unknown]
  - Fatigue [Recovering/Resolving]
  - Grip strength decreased [Unknown]
  - Influenza like illness [Recovering/Resolving]
  - Candida infection [Recovering/Resolving]
  - Hypoaesthesia [Unknown]
  - Parkinson^s disease [Unknown]
  - Headache [Recovering/Resolving]
  - Pain [Recovering/Resolving]
  - Chills [Recovering/Resolving]
  - Eye pruritus [Unknown]
  - Dry eye [Unknown]

NARRATIVE: CASE EVENT DATE: 202004
